FAERS Safety Report 17899437 (Version 1)
Quarter: 2020Q2

REPORT INFORMATION
  Report Type: Spontaneous
  Country: US (occurrence: US)
  Receive Date: 20200616
  Receipt Date: 20200616
  Transmission Date: 20200714
  Serious: No
  Sender: FDA-Public Use
  Company Number: US-ADVANZ PHARMA-GSH201906-001543

PATIENT

DRUGS (14)
  1. TOPROL XL [Concomitant]
     Active Substance: METOPROLOL SUCCINATE
     Dosage: 25 MG, FREQ: UNK X 1 DAYS
  2. WELLBUTRIN [Concomitant]
     Active Substance: BUPROPION HYDROCHLORIDE
     Dosage: 150 MG, TID
  3. SULFASALAZINE. [Concomitant]
     Active Substance: SULFASALAZINE
     Dosage: 500 MG, BID
     Dates: start: 20181126
  4. ASPIRIN. [Concomitant]
     Active Substance: ASPIRIN
     Dosage: 81 MG, FREQ: UNK X 1 DAYS
  5. PROTONIX [Concomitant]
     Active Substance: PANTOPRAZOLE SODIUM
     Dosage: 40 MG, FREQ: UNK X 1 DAYS
  6. LIPITOR [Concomitant]
     Active Substance: ATORVASTATIN CALCIUM
     Dosage: 20 MG, FREQ: UNK X 1 DAYS
  7. AMBIEN [Concomitant]
     Active Substance: ZOLPIDEM TARTRATE
     Dosage: AT NIGHT
  8. VITAMIN B12 [Concomitant]
     Active Substance: CYANOCOBALAMIN
     Dosage: IN THE MORNING
  9. VITAMIN D [Concomitant]
     Active Substance: VITAMIN D NOS
     Dosage: 5000 UNITS IN THE MORNING
  10. HYDROXYCHLOROQUINE SULFATE (AUTHORIZED GENERIC),PLAQUENIL [Suspect]
     Active Substance: HYDROXYCHLOROQUINE SULFATE
     Dosage: UNK
     Route: 048
     Dates: start: 20180707, end: 20190605
  11. TOUJEO INSULIN [Concomitant]
     Dosage: 16 UNITS TWICE DAILY
  12. LYRICA [Concomitant]
     Active Substance: PREGABALIN
     Dosage: 100 MG, BID
  13. TRULANCE [Concomitant]
     Active Substance: PLECANATIDE
     Dosage: 3 MG, FREQ: UNK X 1 DAYS
  14. HUMALOG [Concomitant]
     Active Substance: INSULIN LISPRO
     Dosage: 6 UNITS BEFORE MEAL

REACTIONS (1)
  - Weight increased [Unknown]
